FAERS Safety Report 5299261-9 (Version None)
Quarter: 2007Q2

REPORT INFORMATION
  Report Type: 
  Country: None (occurrence: None)
  Receive Date: 20070417
  Receipt Date: 20070404
  Transmission Date: 20071010
  Serious: Yes (Other)
  Sender: FDA-Public Use
  Company Number: PHEH2007US04313

PATIENT
  Age: 60 Year
  Sex: Female

DRUGS (4)
  1. GLEEVEC [Suspect]
     Indication: GASTROINTESTINAL STROMAL TUMOUR
     Dosage: 400 MG, QD
     Route: 048
     Dates: start: 20060801
  2. AVANDARYL [Concomitant]
     Route: 048
  3. PROTONIX [Concomitant]
     Route: 048
  4. CALCIUM [Concomitant]
     Route: 048

REACTIONS (7)
  - ALOPECIA [None]
  - CYSTITIS NONINFECTIVE [None]
  - GASTRITIS [None]
  - HYPERPLASIA [None]
  - URETHRAL DISCHARGE [None]
  - URETHRAL HAEMORRHAGE [None]
  - VOMITING [None]
